FAERS Safety Report 7690584-2 (Version None)
Quarter: 2011Q3

REPORT INFORMATION
  Report Type: 
  Country: None (occurrence: None)
  Receive Date: 20110818
  Receipt Date: 20110811
  Transmission Date: 20111222
  Serious: Yes (Other)
  Sender: FDA-Public Use
  Company Number: US-BAYER-201035422NA

PATIENT
  Age: 51 Year
  Sex: Female
  Weight: 74.376 kg

DRUGS (5)
  1. ASPIRIN [Concomitant]
     Indication: HEADACHE
     Dosage: UNK UNK, PRN
  2. ASCORBIC ACID [Concomitant]
     Dosage: UNK UNK, PRN
  3. VITAMIN E [Concomitant]
     Dosage: UNK UNK, PRN
  4. AIRBRON [Concomitant]
     Dosage: UNK UNK, PRN
  5. YAZ [Suspect]
     Indication: CONTRACEPTION
     Route: 048
     Dates: start: 20070701, end: 20070901

REACTIONS (1)
  - DEEP VEIN THROMBOSIS [None]
